FAERS Safety Report 7126242-2 (Version None)
Quarter: 2010Q4

REPORT INFORMATION
  Report Type: 
  Country: None (occurrence: None)
  Receive Date: 20101129
  Receipt Date: 20101124
  Transmission Date: 20110411
  Serious: Yes (Hospitalization, Other)
  Sender: FDA-Public Use
  Company Number: US-BRISTOL-MYERS SQUIBB COMPANY-15272123

PATIENT
  Age: 53 Year
  Sex: Male
  Weight: 102 kg

DRUGS (4)
  1. ERBITUX [Suspect]
     Indication: OESOPHAGEAL CARCINOMA
     Dosage: DOSAGE:LOADING DOSE:400MG/M2*1 DOSE THEN 250MG/M2*5
     Dates: start: 20100823
  2. CISPLATIN [Suspect]
     Indication: OESOPHAGEAL CARCINOMA
     Dosage: DOSAGE:25MG/M2
     Dates: start: 20100823
  3. TAXOL [Suspect]
     Indication: OESOPHAGEAL CARCINOMA
     Dosage: DOSAGE:50MG/M2 WEEKLY *6DOSES
     Dates: start: 20100823
  4. RADIATION THERAPY [Suspect]
     Indication: OESOPHAGEAL CARCINOMA
     Dosage: 1 DF:50.4GY,NO OF FRACTIONS:28,NOI OF ELAPSED DAYS:7,DOSAGE:RT-50.4 GY IN /DAY FRACTIONS
     Dates: end: 20100825

REACTIONS (6)
  - FEBRILE NEUTROPENIA [None]
  - HYPOMAGNESAEMIA [None]
  - NEUTROPHIL COUNT DECREASED [None]
  - OESOPHAGITIS [None]
  - PLATELET COUNT DECREASED [None]
  - VOMITING [None]
